FAERS Safety Report 5244744-0 (Version None)
Quarter: 2007Q1

REPORT INFORMATION
  Report Type: 
  Country: None (occurrence: None)
  Receive Date: 20061201
  Receipt Date: 20060801
  Transmission Date: 20070707
  Serious: No
  Sender: FDA-Public Use
  Company Number: 2006PV018738

PATIENT
  Age: 57 Year
  Sex: Female
  Weight: 124.7392 kg

DRUGS (9)
  1. BYETTA [Suspect]
     Indication: DIABETES MELLITUS NON-INSULIN-DEPENDENT
     Dosage: SEE IMAGE
     Route: 058
     Dates: start: 20060501, end: 20060601
  2. BYETTA [Suspect]
     Indication: DIABETES MELLITUS NON-INSULIN-DEPENDENT
     Dosage: SEE IMAGE
     Route: 058
     Dates: start: 20060601
  3. LANTUS [Concomitant]
  4. METFORMIN [Concomitant]
  5. IRON [Concomitant]
  6. ALPHABETIC MUTIVITAMIN [Concomitant]
  7. LISINOPRIL [Concomitant]
  8. TOPROL-XL [Concomitant]
  9. HYDROCHLOROTHIAZIDE [Concomitant]

REACTIONS (2)
  - ALOPECIA [None]
  - WEIGHT DECREASED [None]
